FAERS Safety Report 23108926 (Version 2)
Quarter: 2023Q4

REPORT INFORMATION
  Report Type: Spontaneous
  Country: US (occurrence: US)
  Receive Date: 20231026
  Receipt Date: 20231130
  Transmission Date: 20240109
  Serious: No
  Sender: FDA-Public Use
  Company Number: US-GLAXOSMITHKLINE-US2023AMR147426

PATIENT
  Age: 59 Year
  Sex: Female
  Weight: 59.41 kg

DRUGS (4)
  1. ZEJULA [Suspect]
     Active Substance: NIRAPARIB
     Indication: Ovarian cancer
     Dosage: 100 MG, QD
     Route: 048
     Dates: start: 202309
  2. ROSUVASTATIN CALCIUM [Concomitant]
     Active Substance: ROSUVASTATIN CALCIUM
     Indication: Product used for unknown indication
     Dosage: 10 MG
  3. VITAMIN D3 [Concomitant]
     Active Substance: CHOLECALCIFEROL
     Indication: Product used for unknown indication
     Dosage: 125 UG
  4. NEULASTA [Concomitant]
     Active Substance: PEGFILGRASTIM
     Indication: Product used for unknown indication
     Dosage: UNK

REACTIONS (12)
  - Blood pressure increased [Unknown]
  - Headache [Unknown]
  - Dysstasia [Unknown]
  - Lymphadenopathy [Unknown]
  - Pain [Unknown]
  - Bladder discomfort [Unknown]
  - Swelling [Unknown]
  - Chest pain [Recovering/Resolving]
  - Musculoskeletal discomfort [Recovering/Resolving]
  - Fatigue [Unknown]
  - Carbohydrate antigen 125 increased [Unknown]
  - Dysuria [Unknown]

NARRATIVE: CASE EVENT DATE: 20231001
